FAERS Safety Report 11294523 (Version 1)
Quarter: 2015Q3

REPORT INFORMATION
  Report Type: Spontaneous
  Country: US (occurrence: None)
  Receive Date: 20150721
  Receipt Date: 20150721
  Transmission Date: 20151125
  Serious: Yes (Other)
  Sender: FDA-Public Use
  Company Number: US-H14001-15-01336

PATIENT
  Age: 25 Year
  Sex: Male
  Weight: 113.4 kg

DRUGS (2)
  1. ZOLOFT (SERTRALINE HYDROCHLORIE) (UNKNOWN) (SERTRALINE HYDROCHLORIDE) [Concomitant]
  2. CIPROFLOXACIN (CIPROFLOXACIN) [Suspect]
     Active Substance: CIPROFLOXACIN
     Indication: EPIDIDYMITIS
     Dosage: 1000 MG (500 MG, 2 IN 1 D)
     Route: 048
     Dates: start: 20150623, end: 201506

REACTIONS (18)
  - Hypoaesthesia [None]
  - Anxiety [None]
  - Suicidal ideation [None]
  - Photosensitivity reaction [None]
  - Irritability [None]
  - Feeling hot [None]
  - Hypoacusis [None]
  - Ageusia [None]
  - Dyspnoea [None]
  - Chills [None]
  - Paraesthesia [None]
  - Headache [None]
  - Agitation [None]
  - Flushing [None]
  - Confusional state [None]
  - Hypopnoea [None]
  - Tinnitus [None]
  - Hyperhidrosis [None]

NARRATIVE: CASE EVENT DATE: 201506
